FAERS Safety Report 4748527-7 (Version None)
Quarter: 2005Q3

REPORT INFORMATION
  Report Type: 
  Country: None (occurrence: None)
  Receive Date: 20050818
  Receipt Date: 20050805
  Transmission Date: 20060218
  Serious: Yes (Other)
  Sender: FDA-Public Use
  Company Number: 2005111194

PATIENT
  Age: 25 Year
  Sex: Female
  Weight: 45.3597 kg

DRUGS (2)
  1. UNISOM SLEEPGELS (DIPHENHYDRAMINE) [Suspect]
     Dosage: 8 OR MORE TABS ONCE, ORAL
     Route: 048
     Dates: start: 20050804, end: 20050804
  2. ETHANOL (ETHANOL) [Suspect]
     Dosage: ^LARGE AMOUNT^, ORAL
     Route: 048
     Dates: start: 20050804, end: 20050804

REACTIONS (4)
  - ALCOHOL USE [None]
  - GAIT DISTURBANCE [None]
  - INTENTIONAL MISUSE [None]
  - UNEVALUABLE EVENT [None]
